FAERS Safety Report 8399277-X (Version None)
Quarter: 2012Q2

REPORT INFORMATION
  Report Type: 
  Country: None (occurrence: None)
  Receive Date: 20120531
  Receipt Date: 20120524
  Transmission Date: 20120825
  Serious: Yes (Hospitalization)
  Sender: FDA-Public Use
  Company Number: HR-GLAXOSMITHKLINE-B0804372A

PATIENT
  Age: 53 Year
  Sex: Male

DRUGS (5)
  1. LISINOPRIL AND HYDROCHLOROTHIAZIDE [Suspect]
     Indication: HYPERTENSION
     Route: 065
     Dates: start: 20100101, end: 20110101
  2. NEBIVOLOL HYDROCHLORIDE [Suspect]
     Indication: HYPERTENSION
     Dosage: 5MG PER DAY
     Route: 048
  3. RAMIPRIL [Suspect]
     Indication: HYPERTENSION
     Route: 048
  4. SPIRIVA [Suspect]
     Indication: ASTHMA
     Dosage: 18MCG PER DAY
     Route: 055
  5. FLUTICASONE PROPIONATE/SALMETEROL [Suspect]
     Indication: ASTHMA
     Route: 055
     Dates: start: 20100101

REACTIONS (6)
  - CHEST PAIN [None]
  - CHEST DISCOMFORT [None]
  - MEDICATION ERROR [None]
  - COUGH [None]
  - RIB FRACTURE [None]
  - LABELLED DRUG-DISEASE INTERACTION MEDICATION ERROR [None]
